FAERS Safety Report 6253322-6 (Version None)
Quarter: 2009Q3

REPORT INFORMATION
  Report Type: 
  Country: None (occurrence: None)
  Receive Date: 20090701
  Receipt Date: 20090601
  Transmission Date: 20100115
  Serious: Yes (Other)
  Sender: FDA-Public Use
  Company Number: JP-ROCHE-639228

PATIENT
  Age: 70 Year
  Sex: Female

DRUGS (2)
  1. CAPECITABINE [Suspect]
     Indication: BREAST CANCER
     Route: 048
     Dates: start: 20080701, end: 20090501
  2. PREDNISOLONE [Concomitant]
     Dosage: DOSE : 4 TABLETS A DAY

REACTIONS (1)
  - INTERSTITIAL LUNG DISEASE [None]
